FAERS Safety Report 11716541 (Version 4)
Quarter: 2018Q3

REPORT INFORMATION
  Report Type: Report from Study
  Country: UM (occurrence: US)
  Receive Date: 20151109
  Receipt Date: 20180917
  Transmission Date: 20181010
  Serious: Yes (Hospitalization)
  Sender: FDA-Public Use
  Company Number: US-EISAI MEDICAL RESEARCH-EC-2015-011881

PATIENT
  Age: 56 Year
  Sex: Female
  Weight: 55.3 kg

DRUGS (11)
  1. AMBIEN [Concomitant]
     Active Substance: ZOLPIDEM TARTRATE
  2. SYNTHROID [Concomitant]
     Active Substance: LEVOTHYROXINE SODIUM
  3. LETROZOLE. [Concomitant]
     Active Substance: LETROZOLE
  4. CALCIUM AND D3 [Concomitant]
  5. DEXAMETHASONE. [Concomitant]
     Active Substance: DEXAMETHASONE
  6. NEURONTIN [Concomitant]
     Active Substance: GABAPENTIN
  7. GABAPENTIN. [Concomitant]
     Active Substance: GABAPENTIN
  8. LENVIMA [Suspect]
     Active Substance: LENVATINIB
     Indication: THYROID CANCER
     Route: 048
     Dates: start: 20151021, end: 20151028
  9. MOTRIN [Concomitant]
     Active Substance: IBUPROFEN
  10. LENVIMA [Suspect]
     Active Substance: LENVATINIB
     Route: 048
     Dates: start: 20180703, end: 201809
  11. TENORMIN [Concomitant]
     Active Substance: ATENOLOL

REACTIONS (2)
  - Lip blister [Not Recovered/Not Resolved]
  - Intestinal perforation [Recovered/Resolved]

NARRATIVE: CASE EVENT DATE: 20151028
